FAERS Safety Report 10078876 (Version 1)
Quarter: 2014Q2

REPORT INFORMATION
  Report Type: Spontaneous
  Country: US (occurrence: US)
  Receive Date: 20140415
  Receipt Date: 20140415
  Transmission Date: 20141212
  Serious: No
  Sender: FDA-Public Use
  Company Number: US-009507513-1404USA005257

PATIENT
  Age: 14 Year
  Sex: Male

DRUGS (1)
  1. INVANZ [Suspect]
     Indication: SERRATIA INFECTION
     Dosage: 1 G, QD
     Route: 042
     Dates: start: 20140407

REACTIONS (3)
  - Heart rate increased [Recovered/Resolved]
  - Respiratory tract congestion [Recovered/Resolved]
  - Pyrexia [Recovered/Resolved]
